FAERS Safety Report 10004482 (Version 3)
Quarter: 2014Q2

REPORT INFORMATION
  Report Type: Spontaneous
  Country: US (occurrence: US)
  Receive Date: 20140312
  Receipt Date: 20140508
  Transmission Date: 20141212
  Serious: No
  Sender: FDA-Public Use
  Company Number: US-PFIZER INC-2014070235

PATIENT
  Age: 84 Year
  Sex: Female
  Weight: 73 kg

DRUGS (3)
  1. PREMARIN [Suspect]
     Indication: POLLAKIURIA
     Dosage: 0.625 MG, UNK
     Route: 067
     Dates: start: 2013
  2. PREMARIN [Suspect]
  3. NORVASC [Concomitant]
     Indication: HYPERTENSION
     Dosage: UNK

REACTIONS (1)
  - Drug ineffective [Unknown]
